FAERS Safety Report 5126434-8 (Version None)
Quarter: 2006Q4

REPORT INFORMATION
  Report Type: 
  Country: None (occurrence: None)
  Receive Date: 20061010
  Receipt Date: 20061002
  Transmission Date: 20070319
  Serious: Yes (Death, Hospitalization, Other)
  Sender: FDA-Public Use
  Company Number: 2006BI007893

PATIENT
  Age: 76 Year
  Sex: Male

DRUGS (13)
  1. AVONEX [Suspect]
     Indication: MULTIPLE SCLEROSIS
     Dosage: 30 UG; QW; IM
     Route: 030
     Dates: start: 19990719
  2. AVONEX [Suspect]
     Indication: MULTIPLE SCLEROSIS
     Dosage: 30 UG; QW; IM
     Route: 030
  3. AMBIEN [Concomitant]
  4. KLONOPIN [Concomitant]
  5. MIACALCIN [Concomitant]
  6. FOLGARD [Concomitant]
  7. AVAPRO [Concomitant]
  8. ALDACTONE [Concomitant]
  9. DOXAZOSIN MESYLATE [Concomitant]
  10. VYTORIN [Concomitant]
  11. CALCIUM GLUCONATE [Concomitant]
  12. VITAMIN D [Concomitant]
  13. SOLU-MEDROL [Concomitant]

REACTIONS (31)
  - ACUTE MYOCARDIAL INFARCTION [None]
  - ASTHENIA [None]
  - BACK PAIN [None]
  - BEDRIDDEN [None]
  - BLOOD SODIUM DECREASED [None]
  - CARDIAC FAILURE CONGESTIVE [None]
  - CATARACT [None]
  - COLONIC POLYP [None]
  - CONSTIPATION [None]
  - COORDINATION ABNORMAL [None]
  - CORONARY ARTERY INSUFFICIENCY [None]
  - DEPRESSION [None]
  - DYSURIA [None]
  - FATIGUE [None]
  - GAIT DISTURBANCE [None]
  - GASTROINTESTINAL FUNGAL INFECTION [None]
  - HALLUCINATION [None]
  - HYPERTENSION [None]
  - MALAISE [None]
  - MICTURITION URGENCY [None]
  - MOBILITY DECREASED [None]
  - MUSCLE SPASTICITY [None]
  - MUSCULAR WEAKNESS [None]
  - OVERDOSE [None]
  - POLLAKIURIA [None]
  - PROSTATE EXAMINATION ABNORMAL [None]
  - RENAL CELL CARCINOMA STAGE UNSPECIFIED [None]
  - SINUSITIS [None]
  - TRANSIENT ISCHAEMIC ATTACK [None]
  - URINARY RETENTION [None]
  - URINARY TRACT INFECTION [None]
